FAERS Safety Report 5253640-4 (Version None)
Quarter: 2007Q1

REPORT INFORMATION
  Report Type: 
  Country: None (occurrence: None)
  Receive Date: 20070220
  Receipt Date: 20070205
  Transmission Date: 20070707
  Serious: Yes (Other)
  Sender: FDA-Public Use
  Company Number: B0458341A

PATIENT
  Age: 16 Year
  Sex: Male

DRUGS (6)
  1. VENTOLIN [Suspect]
     Indication: ASTHMA
     Dosage: SEE DOSAGE TEXT INHALED
     Route: 055
  2. PREDNISONE [Concomitant]
  3. KETAMINE HCL [Concomitant]
  4. MAGNESIUM SULFATE [Concomitant]
  5. MEPREDNISONE [Concomitant]
  6. ALBUTEROL SULFATE [Concomitant]

REACTIONS (7)
  - COMA [None]
  - DYSPNOEA [None]
  - LACTIC ACIDOSIS [None]
  - LUNG HYPERINFLATION [None]
  - TACHYCARDIA [None]
  - TREATMENT NONCOMPLIANCE [None]
  - UNRESPONSIVE TO STIMULI [None]
